FAERS Safety Report 9511921 (Version 2)
Quarter: 2013Q4

REPORT INFORMATION
  Report Type: Spontaneous
  Country: US (occurrence: US)
  Receive Date: 20130910
  Receipt Date: 20131101
  Transmission Date: 20140711
  Serious: Yes (Other)
  Sender: FDA-Public Use
  Company Number: US-BAYER-2013-108788

PATIENT
  Age: 23 Year
  Sex: Female
  Weight: 60.32 kg

DRUGS (5)
  1. MIRENA [Suspect]
     Indication: CONTRACEPTION
     Dosage: 20 MCG/24HR, CONT
     Route: 015
     Dates: start: 20090610, end: 20090821
  2. HYDROCODONE W/ACETAMINOPHEN [Concomitant]
  3. IBUPROFEN [Concomitant]
  4. MICROGESTIN [Concomitant]
  5. DOCUSATE SODIUM [Concomitant]

REACTIONS (7)
  - Uterine perforation [None]
  - Injury [None]
  - Pain [None]
  - Emotional distress [None]
  - Device malfunction [None]
  - Anxiety [None]
  - Device dislocation [None]
